FAERS Safety Report 15220604 (Version 27)
Quarter: 2019Q4

REPORT INFORMATION
  Report Type: Spontaneous
  Country: US (occurrence: US)
  Receive Date: 20180731
  Receipt Date: 20191224
  Transmission Date: 20200122
  Serious: Yes (Hospitalization, Disabling, Other)
  Sender: FDA-Public Use
  Company Number: US-ENDO PHARMACEUTICALS INC-2018-040221

PATIENT
  Age: 69 Year
  Sex: Female
  Weight: 104.31 kg

DRUGS (1)
  1. BUPROPION HYDROCHLORIDE. [Suspect]
     Active Substance: BUPROPION HYDROCHLORIDE
     Indication: DEPRESSION
     Dosage: 150 MG, DAILY (TOOK FOR 5-6 MONTHS)
     Route: 048
     Dates: start: 20160601, end: 20161201

REACTIONS (51)
  - Cardiomegaly [Unknown]
  - Blood glucose increased [Not Recovered/Not Resolved]
  - Back disorder [Not Recovered/Not Resolved]
  - Hypoaesthesia [Not Recovered/Not Resolved]
  - Amnesia [Unknown]
  - Cough [Unknown]
  - Hypertension [Unknown]
  - Muscular weakness [Unknown]
  - Asthenia [Recovered/Resolved]
  - Fall [Unknown]
  - Ill-defined disorder [Unknown]
  - Carotid artery disease [Unknown]
  - Near death experience [Unknown]
  - Loss of personal independence in daily activities [Not Recovered/Not Resolved]
  - Visual impairment [Not Recovered/Not Resolved]
  - Vomiting [Not Recovered/Not Resolved]
  - Condition aggravated [Unknown]
  - Thrombosis [Unknown]
  - Blood glucose increased [Unknown]
  - Condition aggravated [Not Recovered/Not Resolved]
  - Dyspnoea [Not Recovered/Not Resolved]
  - Immobile [Unknown]
  - Dyspnoea [Not Recovered/Not Resolved]
  - Gait disturbance [Not Recovered/Not Resolved]
  - Arthropathy [Unknown]
  - Fall [Not Recovered/Not Resolved]
  - Pain [Not Recovered/Not Resolved]
  - Tremor [Unknown]
  - Disability [Not Recovered/Not Resolved]
  - Lung disorder [Unknown]
  - Hypertension [Not Recovered/Not Resolved]
  - Oxygen therapy [Unknown]
  - Feeling abnormal [Unknown]
  - Unevaluable event [Unknown]
  - Condition aggravated [Not Recovered/Not Resolved]
  - Malaise [Not Recovered/Not Resolved]
  - Critical illness [Unknown]
  - Cardiac failure congestive [Unknown]
  - Cerebrovascular accident [Unknown]
  - Pneumonia [Not Recovered/Not Resolved]
  - Cerebrovascular accident [Unknown]
  - Pulmonary embolism [Not Recovered/Not Resolved]
  - Dysstasia [Unknown]
  - General physical health deterioration [Unknown]
  - Impaired quality of life [Unknown]
  - Anal incontinence [Not Recovered/Not Resolved]
  - Weight increased [Unknown]
  - Depressed mood [Unknown]
  - Asthenia [Not Recovered/Not Resolved]
  - Pain [Not Recovered/Not Resolved]
  - Arthralgia [Unknown]

NARRATIVE: CASE EVENT DATE: 2016
